FAERS Safety Report 7606742-9 (Version None)
Quarter: 2011Q3

REPORT INFORMATION
  Report Type: 
  Country: None (occurrence: None)
  Receive Date: 20110713
  Receipt Date: 20110708
  Transmission Date: 20111222
  Serious: Yes (Disabling, Other)
  Sender: FDA-Public Use
  Company Number: US-MERCK-1106USA03541

PATIENT
  Age: 60 Year
  Sex: Female

DRUGS (2)
  1. SINEMET [Suspect]
     Indication: PARKINSON'S DISEASE
     Route: 048
  2. CARBIDOPA + LEVODOPA [Suspect]
     Route: 065

REACTIONS (2)
  - TABLET PHYSICAL ISSUE [None]
  - PARKINSON'S DISEASE [None]
